FAERS Safety Report 25591751 (Version 1)
Quarter: 2025Q3

REPORT INFORMATION
  Report Type: Report from Study
  Country: US (occurrence: US)
  Receive Date: 20250722
  Receipt Date: 20250722
  Transmission Date: 20251020
  Serious: No
  Sender: VANDA PHARMACEUTICALS
  Company Number: US-VANDA PHARMACEUTICALS, INC-2025TASUS007501

PATIENT
  Sex: Male

DRUGS (3)
  1. HETLIOZ [Suspect]
     Active Substance: TASIMELTEON
     Indication: Non-24-hour sleep-wake disorder
     Dosage: 20 MILLIGRAM, QD, TAKE 20MG BY MOUTH DAILY AT THE SAME TIME EACH NIGHT BEFORE BEDTIME, WITHOUT FOOD
     Route: 048
  2. CETIRIZINE [Concomitant]
     Active Substance: CETIRIZINE HYDROCHLORIDE
     Indication: Product used for unknown indication
  3. VRAYLAR [Concomitant]
     Active Substance: CARIPRAZINE
     Indication: Product used for unknown indication

REACTIONS (7)
  - Cough [Unknown]
  - Fatigue [Unknown]
  - Sleep deficit [Unknown]
  - Urticaria [Unknown]
  - Abnormal dreams [Unknown]
  - Hypersomnia [Unknown]
  - Drug ineffective [Unknown]
